FAERS Safety Report 16659643 (Version 2)
Quarter: 2019Q3

REPORT INFORMATION
  Report Type: Report from Study
  Country: US (occurrence: US)
  Receive Date: 20190802
  Receipt Date: 20190807
  Transmission Date: 20191004
  Serious: Yes (Death)
  Sender: FDA-Public Use
  Company Number: US-ROCHE-2369889

PATIENT
  Sex: Male

DRUGS (1)
  1. TECENTRIQ [Suspect]
     Active Substance: ATEZOLIZUMAB
     Indication: CARCINOID TUMOUR PULMONARY
     Dosage: INFUSE 1200MG INTRAVENOUSLY EVERY 3 WEEKS FOR 28 CYCLES
     Route: 042

REACTIONS (1)
  - Metastatic neoplasm [Fatal]
